FAERS Safety Report 8767580 (Version 1)
Quarter: 2012Q4

REPORT INFORMATION
  Report Type: 
  Country: BR (occurrence: BR)
  Receive Date: 20120904
  Receipt Date: 20120904
  Transmission Date: 20130627
  Serious: Yes (Other)
  Sender: FDA-Public Use
  Company Number: PHHY2012BR075397

PATIENT
  Sex: Male
  Weight: 60 kg

DRUGS (9)
  1. SIMVASTATIN [Suspect]
     Indication: BLOOD CHOLESTEROL
     Dosage: 40 mg, QD
  2. LOSARTAN POTASSIUM [Suspect]
     Indication: BLOOD PRESSURE
     Dosage: 25 mg, BID
     Route: 048
  3. PAROXETINE [Concomitant]
     Indication: DEPRESSION
     Dosage: 40 mg, QD
  4. CALCIUM [Concomitant]
     Indication: OSTEOPOROSIS
     Dosage: 1 DF, QD
  5. ALENDRONATE SODIUM [Concomitant]
     Dosage: 1 DF/week
  6. AMITRIPTYLINE [Concomitant]
     Indication: ANXIETY
     Dosage: 1 DF, UNK
  7. AMITRIPTYLINE [Concomitant]
     Indication: SLEEP DISORDER
  8. ENABLEX [Concomitant]
     Indication: URINARY INCONTINENCE
     Dosage: 1 DF, BID
     Route: 048
     Dates: start: 201206
  9. LABIRIN [Concomitant]
     Indication: LABYRINTHITIS
     Dosage: 8 mg, QD

REACTIONS (5)
  - Hydrocephalus [Recovering/Resolving]
  - Neurogenic bladder [Recovering/Resolving]
  - Urinary incontinence [Recovering/Resolving]
  - Musculoskeletal stiffness [Unknown]
  - Asthenia [Unknown]
